FAERS Safety Report 8665734 (Version 2)
Quarter: 2013Q4

REPORT INFORMATION
  Report Type: Spontaneous
  Country: US (occurrence: None)
  Receive Date: 20120405
  Receipt Date: 20131226
  Transmission Date: 20140711
  Serious: Yes (Other)
  Sender: FDA-Public Use
  Company Number: PHEH2012US003978

PATIENT
  Age: 56 Year
  Sex: Female

DRUGS (7)
  1. LOTREL [Suspect]
     Indication: BLOOD PRESSURE
     Dosage: QD, ORAL
     Route: 048
  2. DIOVAN HCT [Suspect]
     Indication: BLOOD PRESSURE
     Dosage: 1 DF, QD, ORAL
     Route: 048
  3. HYDROCHLOROTHIAZIDE [Suspect]
     Dosage: 75 MG, QD, ORAL
     Route: 048
  4. LISINOPRIL [Suspect]
     Indication: BLOOD PRESSURE
     Dosage: QD, ORAL
     Route: 048
  5. BENICAR [Suspect]
     Indication: BLOOD PRESSURE
     Dosage: ONCE DAILY, ORAL
     Route: 048
  6. CODEINE SULFATE [Concomitant]
  7. GLIPIZIDE [Concomitant]

REACTIONS (13)
  - Hallucination [None]
  - Hypoaesthesia [None]
  - Chest discomfort [None]
  - Drug ineffective [None]
  - Chest pain [None]
  - Headache [None]
  - Flushing [None]
  - Palpitations [None]
  - Malaise [None]
  - Blood pressure fluctuation [None]
  - Cough [None]
  - Blood glucose increased [None]
  - Drug dispensing error [None]
